FAERS Safety Report 5757214-8 (Version None)
Quarter: 2008Q2

REPORT INFORMATION
  Report Type: 
  Country: None (occurrence: None)
  Receive Date: 20080603
  Receipt Date: 20080527
  Transmission Date: 20081010
  Serious: Yes (Death, Hospitalization)
  Sender: FDA-Public Use
  Company Number: US-WYE-H04170608

PATIENT
  Sex: Female
  Weight: 110.32 kg

DRUGS (7)
  1. TORISEL [Suspect]
     Indication: RENAL CELL CARCINOMA
     Route: 042
     Dates: start: 20071120, end: 20080501
  2. ASPIRIN [Concomitant]
     Route: 048
  3. VITAMIN E [Concomitant]
  4. PYRIDOXINE HYDROCHLORIDE [Concomitant]
     Route: 048
  5. EFFEXOR XR [Concomitant]
     Route: 048
  6. BISOPROLOL FUMARATE AND HYDROCHLOROTHIAZIDE [Concomitant]
     Indication: HYPERTENSION
     Dosage: 2.5/6.25 ONCE DAILY
     Route: 048
  7. PRAVASTATIN [Concomitant]
     Indication: HYPERCHOLESTEROLAEMIA
     Route: 048

REACTIONS (2)
  - DEATH [None]
  - PLEURAL EFFUSION [None]
